FAERS Safety Report 9508447 (Version 2)
Quarter: 2013Q4

REPORT INFORMATION
  Report Type: Spontaneous
  Country: US (occurrence: US)
  Receive Date: 20130909
  Receipt Date: 20131021
  Transmission Date: 20140711
  Serious: No
  Sender: FDA-Public Use
  Company Number: US-BAYER-2013-108125

PATIENT
  Age: 66 Year
  Sex: Female
  Weight: 72 kg

DRUGS (6)
  1. ALEVE CAPLET [Suspect]
     Indication: ANALGESIC THERAPY
     Dosage: 1 DF, PRN
     Route: 048
     Dates: start: 201308, end: 20130903
  2. LUNESTA [Concomitant]
  3. DILTIAZEM [Concomitant]
  4. MELOXICAM [Concomitant]
  5. JANUVIA [Concomitant]
  6. CITALOPRAM [Concomitant]

REACTIONS (2)
  - Glossodynia [Recovered/Resolved]
  - Dysgeusia [Recovered/Resolved]
